FAERS Safety Report 20375932 (Version 3)
Quarter: 2022Q1

REPORT INFORMATION
  Report Type: Spontaneous
  Country: DE (occurrence: DE)
  Receive Date: 20220125
  Receipt Date: 20220211
  Transmission Date: 20220423
  Serious: Yes (Death)
  Sender: FDA-Public Use
  Company Number: DE-NOVARTISPH-NVSC2022DE015134

PATIENT
  Age: 68 Year
  Sex: Male
  Weight: 120 kg

DRUGS (8)
  1. DOCETAXEL [Suspect]
     Active Substance: DOCETAXEL
     Indication: Non-small cell lung cancer
     Dosage: 147 MG, QD
     Route: 065
     Dates: start: 20211019, end: 20211108
  2. DOCETAXEL [Suspect]
     Active Substance: DOCETAXEL
     Dosage: 120 MG, QD
     Route: 065
     Dates: start: 20211108, end: 20220110
  3. PREDNISOLONE [Suspect]
     Active Substance: PREDNISOLONE
     Indication: Myasthenia gravis
     Dosage: UNK
     Route: 065
  4. NINTEDANIB [Suspect]
     Active Substance: NINTEDANIB
     Indication: Non-small cell lung cancer
     Dosage: 100 MG, BID (0.5 DAY)
     Route: 048
     Dates: start: 20211222, end: 20211230
  5. NINTEDANIB [Suspect]
     Active Substance: NINTEDANIB
     Dosage: 400 MG, QD
     Route: 048
     Dates: start: 20211020, end: 20211025
  6. NINTEDANIB [Suspect]
     Active Substance: NINTEDANIB
     Dosage: 100 MG, BID (1-0-1)
     Route: 048
     Dates: start: 20211201, end: 20211207
  7. NINTEDANIB [Suspect]
     Active Substance: NINTEDANIB
     Dosage: 100 MG
     Route: 048
     Dates: start: 20211201, end: 20211207
  8. NINTEDANIB [Suspect]
     Active Substance: NINTEDANIB
     Dosage: 100 MG
     Route: 048
     Dates: start: 20211222, end: 20211230

REACTIONS (4)
  - Immunosuppression [Fatal]
  - Blood bilirubin increased [Recovered/Resolved]
  - Blood bilirubin increased [Recovered/Resolved]
  - Diarrhoea [Not Recovered/Not Resolved]

NARRATIVE: CASE EVENT DATE: 20211001
